FAERS Safety Report 11745515 (Version 1)
Quarter: 2015Q4

REPORT INFORMATION
  Report Type: Report from Study
  Country: US (occurrence: US)
  Receive Date: 20151117
  Receipt Date: 20151117
  Transmission Date: 20160304
  Serious: Yes (Death, Hospitalization)
  Sender: FDA-Public Use
  Company Number: US-ROCHE-ITM201502IM009497

PATIENT
  Age: 78 Year
  Sex: Male

DRUGS (10)
  1. VITAMIN A [Concomitant]
     Active Substance: VITAMIN A
  2. VITAMIN C [Concomitant]
     Active Substance: ASCORBIC ACID
  3. ESBRIET [Suspect]
     Active Substance: PIRFENIDONE
     Indication: IDIOPATHIC PULMONARY FIBROSIS
     Route: 048
     Dates: start: 20150121, end: 20150123
  4. ATENOLOL. [Concomitant]
     Active Substance: ATENOLOL
  5. ADVIL [Concomitant]
     Active Substance: IBUPROFEN
  6. VITAMIN E [Concomitant]
     Active Substance: .ALPHA.-TOCOPHEROL
  7. LASIX [Concomitant]
     Active Substance: FUROSEMIDE
  8. IMODIUM [Concomitant]
     Active Substance: LOPERAMIDE HYDROCHLORIDE
  9. ESBRIET [Suspect]
     Active Substance: PIRFENIDONE
     Route: 048
     Dates: start: 20150122
  10. FLAX OIL [Concomitant]

REACTIONS (3)
  - General physical health deterioration [Unknown]
  - Small intestinal obstruction [Fatal]
  - Post procedural pneumonia [Unknown]

NARRATIVE: CASE EVENT DATE: 20150122
